FAERS Safety Report 9596221 (Version 3)
Quarter: 2014Q1

REPORT INFORMATION
  Report Type: Spontaneous
  Country: US (occurrence: US)
  Receive Date: 20131004
  Receipt Date: 20140103
  Transmission Date: 20141002
  Serious: Yes (Hospitalization)
  Sender: FDA-Public Use
  Company Number: US-PFIZER INC-2013281211

PATIENT
  Age: 55 Year
  Sex: Female
  Weight: 133 kg

DRUGS (14)
  1. REVATIO [Suspect]
     Indication: PULMONARY HYPERTENSION
     Dosage: 20 MG, 3X/DAY
     Route: 048
     Dates: start: 20070824
  2. REVATIO [Suspect]
     Indication: PULMONARY HYPERTENSION
  3. HYDRALAZINE [Concomitant]
     Dosage: UNK
  4. METOLAZONE [Concomitant]
     Dosage: UNK
  5. K-DUR [Concomitant]
     Dosage: UNK
  6. ADVAIR [Concomitant]
     Dosage: FLUTICASONE PROPIONATE - 115/SALMETEROL XINAFOATE- 21 (2 PUFFS)
  7. OMEPRAZOLE [Concomitant]
     Dosage: 20 MG, DAILY
  8. WARFARIN [Concomitant]
     Indication: ANTICOAGULANT THERAPY
     Dosage: UNK
     Route: 048
  9. TORSEMIDE [Concomitant]
     Dosage: 50 MG, DAILY
  10. NORCO [Concomitant]
     Dosage: HYDROCODONE BITARTRATE - 7.5, PARACETAMOL - 500
  11. TRACLEER [Concomitant]
     Indication: PULMONARY ARTERIAL HYPERTENSION
     Dosage: 125 MG, 2X/DAY
  12. CALCIUM [Concomitant]
     Indication: DYSPEPSIA
     Dosage: 1000 MG, AS NEEDED
  13. LANOXIN [Concomitant]
     Dosage: 125 UG, UNK
  14. SILDENAFIL [Concomitant]
     Dosage: 20 MG, 3X/DAY

REACTIONS (3)
  - Pulmonary hypertension [Unknown]
  - Cardiac disorder [Recovering/Resolving]
  - Weaning failure [Recovering/Resolving]
